FAERS Safety Report 5442390-7 (Version None)
Quarter: 2007Q3

REPORT INFORMATION
  Report Type: 
  Country: None (occurrence: None)
  Receive Date: 20070904
  Receipt Date: 20070824
  Transmission Date: 20080115
  Serious: Yes (Hospitalization)
  Sender: FDA-Public Use
  Company Number: US-PFIZER INC-2007064865

PATIENT
  Sex: Female
  Weight: 54.2 kg

DRUGS (6)
  1. SUTENT [Suspect]
     Indication: BREAST CANCER
     Route: 048
  2. PACLITAXEL [Suspect]
     Indication: BREAST CANCER
     Route: 042
  3. FILGRASTIM [Concomitant]
     Route: 058
     Dates: start: 20070803, end: 20070805
  4. EPOETIN ALFA [Concomitant]
     Route: 058
     Dates: start: 20070803, end: 20070803
  5. ACETAMINOPHEN [Concomitant]
     Route: 048
     Dates: start: 20070805, end: 20070805
  6. ALPRAZOLAM [Concomitant]
     Route: 048
     Dates: start: 20070805, end: 20070805

REACTIONS (1)
  - INFECTION [None]
